FAERS Safety Report 10524035 (Version 1)
Quarter: 2014Q4

REPORT INFORMATION
  Report Type: Spontaneous
  Country: US (occurrence: US)
  Receive Date: 20141017
  Receipt Date: 20141017
  Transmission Date: 20150528
  Serious: Yes (Other)
  Sender: FDA-Public Use
  Company Number: US-BAYER-2014-149432

PATIENT
  Age: 62 Year
  Sex: Female

DRUGS (1)
  1. ALEVE [Suspect]
     Active Substance: NAPROXEN SODIUM
     Indication: ARTHRITIS
     Dosage: UNK, BID, FOR A YEAR
     Route: 048
     Dates: start: 2013, end: 2014

REACTIONS (8)
  - Asthenia [Recovered/Resolved]
  - Anxiety [None]
  - Pallor [Recovered/Resolved]
  - Muscle spasms [Recovered/Resolved]
  - Anaemia [Recovered/Resolved]
  - Dark circles under eyes [Recovered/Resolved]
  - Feeling abnormal [Recovered/Resolved]
  - Incorrect drug administration duration [Unknown]

NARRATIVE: CASE EVENT DATE: 2014
